FAERS Safety Report 6641633-1 (Version None)
Quarter: 2010Q1

REPORT INFORMATION
  Report Type: 
  Country: None (occurrence: None)
  Receive Date: 20100317
  Receipt Date: 20100317
  Transmission Date: 20100710
  Serious: No
  Sender: FDA-Public Use
  Company Number: None

PATIENT
  Age: 34 Year
  Sex: Female
  Weight: 103.5 kg

DRUGS (2)
  1. PROCHLORPERAZINE [Suspect]
     Indication: NAUSEA
     Dosage: 10 MG ONCE IV
     Route: 042
     Dates: start: 20090223, end: 20090223
  2. METOCLOPRAMIDE [Suspect]
     Indication: NAUSEA
     Dosage: 10 MG ONCE IV
     Route: 042
     Dates: start: 20100223, end: 20100223

REACTIONS (2)
  - DYSTONIA [None]
  - HYPERSENSITIVITY [None]
